FAERS Safety Report 12654206 (Version 2)
Quarter: 2016Q4

REPORT INFORMATION
  Report Type: Spontaneous
  Country: IT (occurrence: IT)
  Receive Date: 20160816
  Receipt Date: 20161206
  Transmission Date: 20170207
  Serious: Yes (Disabling)
  Sender: FDA-Public Use
  Company Number: IT-009507513-1608ITA007472

PATIENT
  Age: 88 Year
  Sex: Female

DRUGS (1)
  1. ALENDROS? 10 MG COMPRESSE [Suspect]
     Active Substance: ALENDRONATE SODIUM
     Indication: OSTEOPOROSIS
     Dosage: UNK
     Dates: start: 20130101, end: 20150801

REACTIONS (4)
  - Impaired healing [Unknown]
  - Fistula [Unknown]
  - Bone density increased [Unknown]
  - Purulent discharge [Unknown]

NARRATIVE: CASE EVENT DATE: 20151001
